FAERS Safety Report 7411480-1 (Version None)
Quarter: 2011Q2

REPORT INFORMATION
  Report Type: 
  Country: None (occurrence: None)
  Receive Date: 20110405
  Receipt Date: 20110321
  Transmission Date: 20111010
  Serious: Yes (Hospitalization, Other)
  Sender: FDA-Public Use
  Company Number: 2011P1005397

PATIENT
  Age: 16 Year
  Sex: Male

DRUGS (1)
  1. MINOCYCLINE [Suspect]
     Indication: ACNE
     Dosage: 50 MG; BID; PO
     Route: 048

REACTIONS (5)
  - PAROTITIS [None]
  - ODYNOPHAGIA [None]
  - BLOOD AMYLASE INCREASED [None]
  - BLOOD ALKALINE PHOSPHATASE INCREASED [None]
  - STEVENS-JOHNSON SYNDROME [None]
